FAERS Safety Report 9201197 (Version 2)
Quarter: 2013Q2

REPORT INFORMATION
  Report Type: Spontaneous
  Country: IT (occurrence: IT)
  Receive Date: 20130401
  Receipt Date: 20130424
  Transmission Date: 20140414
  Serious: Yes (Other)
  Sender: FDA-Public Use
  Company Number: PHHY2013IT029969

PATIENT
  Age: 61 Year
  Sex: Male

DRUGS (3)
  1. MYFORTIC [Suspect]
     Indication: LUNG TRANSPLANT
     Dosage: 360 MG, BID
     Dates: start: 20130128
  2. MYFORTIC [Suspect]
     Indication: OFF LABEL USE
     Dosage: 720 MG, BID
     Dates: end: 20130319
  3. SANDIMMUN NEORAL [Suspect]
     Dosage: 150 MG, QD
     Dates: start: 20110930

REACTIONS (5)
  - Weight decreased [Recovered/Resolved]
  - Influenza like illness [Recovered/Resolved]
  - Nausea [Recovered/Resolved]
  - Vomiting [Recovered/Resolved]
  - Decreased appetite [Recovered/Resolved]
